FAERS Safety Report 7621746-8 (Version None)
Quarter: 2011Q3

REPORT INFORMATION
  Report Type: 
  Country: None (occurrence: None)
  Receive Date: 20110719
  Receipt Date: 20110705
  Transmission Date: 20111222
  Serious: Yes (Hospitalization)
  Sender: FDA-Public Use
  Company Number: BR-AMGEN-BRACT2010005629

PATIENT
  Age: 31 Year
  Sex: Female
  Weight: 53.5 kg

DRUGS (5)
  1. PERTUZUMAB [Concomitant]
     Indication: BREAST CANCER
     Dosage: 420 MG, UNK
     Route: 042
     Dates: start: 20100526
  2. CARBOPLATIN [Concomitant]
     Indication: BREAST CANCER
     Dosage: 1037.9 MG, UNK
     Dates: start: 20100526
  3. DOCETAXEL [Concomitant]
     Indication: BREAST CANCER
     Dosage: 75 MG/M2, UNK
     Route: 042
     Dates: start: 20100526
  4. FILGRASTIM [Suspect]
     Indication: BREAST CANCER
     Dosage: UNK UNK, QD
     Dates: start: 20100913, end: 20101018
  5. TRASTUZUMAB [Concomitant]
     Indication: BREAST CANCER
     Dosage: 6 MG/KG, UNK
     Route: 042
     Dates: start: 20100526

REACTIONS (2)
  - FEBRILE NEUTROPENIA [None]
  - THROMBOCYTOPENIA [None]
